FAERS Safety Report 8587611-7 (Version None)
Quarter: 2012Q3

REPORT INFORMATION
  Report Type: 
  Country: None (occurrence: None)
  Receive Date: 20120811
  Receipt Date: 20120808
  Transmission Date: 20120928
  Serious: Yes (Other)
  Sender: FDA-Public Use
  Company Number: GB-ABBOTT-12P-167-0966018-00

PATIENT
  Age: 41 Year
  Sex: Male

DRUGS (1)
  1. CANDESARTAN CILEXETIL [Suspect]
     Indication: CARDIAC FAILURE CHRONIC
     Dates: start: 20110603, end: 20111005

REACTIONS (2)
  - HYPERKALAEMIA [None]
  - DRUG INEFFECTIVE [None]
